FAERS Safety Report 7491850-6 (Version None)
Quarter: 2011Q2

REPORT INFORMATION
  Report Type: 
  Country: None (occurrence: None)
  Receive Date: 20110519
  Receipt Date: 20110513
  Transmission Date: 20111010
  Serious: Yes (Hospitalization, Other)
  Sender: FDA-Public Use
  Company Number: FR-BRISTOL-MYERS SQUIBB COMPANY-15749377

PATIENT
  Age: 87 Year
  Sex: Female

DRUGS (8)
  1. COUMADIN [Suspect]
     Route: 048
     Dates: start: 20100101, end: 20110330
  2. TRANSIPEG [Concomitant]
     Dosage: 1DF=UNIT NOS
     Route: 048
  3. SERESTA [Concomitant]
     Dosage: 1DF=4 UNIT NOS
     Route: 048
  4. METEOSPASMYL [Concomitant]
     Dosage: 1DF=3 UNIT NOS
     Route: 048
  5. ACETAMINOPHEN [Concomitant]
     Route: 048
  6. ATHYMIL [Concomitant]
     Route: 048
  7. LIBRAX [Concomitant]
     Dosage: 1DF= 2 UNIT NOS
     Route: 048
  8. EFFEXOR [Concomitant]
     Route: 048

REACTIONS (3)
  - HAEMATOMA [None]
  - FALL [None]
  - TRAUMATIC BRAIN INJURY [None]
